FAERS Safety Report 25617456 (Version 1)
Quarter: 2025Q3

REPORT INFORMATION
  Report Type: Spontaneous
  Country: US (occurrence: None)
  Receive Date: 20250729
  Receipt Date: 20250729
  Transmission Date: 20251021
  Serious: Yes (Hospitalization, Disabling, Other)
  Sender: FDA-CTU
  Company Number: None

PATIENT
  Age: 58 Year
  Sex: Female
  Weight: 46.35 kg

DRUGS (11)
  1. DIAZEPAM [Suspect]
     Active Substance: DIAZEPAM
     Indication: Pelvic floor dysfunction
     Dates: start: 20120101, end: 20200901
  2. DIAZEPAM [Suspect]
     Active Substance: DIAZEPAM
     Indication: Muscle spasms
  3. ARMOUR THYROID [Concomitant]
     Active Substance: THYROID, PORCINE
  4. REMERON [Concomitant]
     Active Substance: MIRTAZAPINE
  5. MESTINON [Concomitant]
     Active Substance: PYRIDOSTIGMINE BROMIDE
  6. FENTANYL [Concomitant]
     Active Substance: FENTANYL
  7. MORPHINE [Concomitant]
     Active Substance: MORPHINE
  8. MOTEGRITY [Concomitant]
     Active Substance: PRUCALOPRIDE SUCCINATE
  9. SENNA [Concomitant]
     Active Substance: SENNOSIDES
  10. VITAMINS [Concomitant]
     Active Substance: VITAMINS
  11. minerals liquid [Concomitant]

REACTIONS (6)
  - Suicide attempt [None]
  - Impaired gastric emptying [None]
  - Ileostomy [None]
  - Small fibre neuropathy [None]
  - Autonomic neuropathy [None]
  - Drug withdrawal syndrome [None]

NARRATIVE: CASE EVENT DATE: 20200901
